FAERS Safety Report 9684896 (Version 2)
Quarter: 2013Q4

REPORT INFORMATION
  Report Type: Spontaneous
  Country: IT (occurrence: IT)
  Receive Date: 20131113
  Receipt Date: 20131220
  Transmission Date: 20140711
  Serious: Yes (Hospitalization)
  Sender: FDA-Public Use
  Company Number: IT-ROCHE-1301120

PATIENT
  Age: 48 Year
  Sex: Male
  Weight: 67 kg

DRUGS (3)
  1. PEGASYS [Suspect]
     Indication: CHRONIC HEPATITIS C
     Route: 058
     Dates: start: 20130621, end: 20130902
  2. REBETOL [Concomitant]
     Route: 048
     Dates: start: 20130621, end: 20130902
  3. INCIVO [Concomitant]
     Route: 048
     Dates: start: 20130621, end: 20130902

REACTIONS (2)
  - Ascites [Recovered/Resolved]
  - Encephalopathy [Recovered/Resolved]
